FAERS Safety Report 11009152 (Version 3)
Quarter: 2015Q2

REPORT INFORMATION
  Report Type: Spontaneous
  Country: US (occurrence: US)
  Receive Date: 20150410
  Receipt Date: 20150604
  Transmission Date: 20150821
  Serious: No
  Sender: FDA-Public Use
  Company Number: US-PFIZER INC-2015119308

PATIENT
  Age: 61 Year
  Sex: Female

DRUGS (1)
  1. LIPITOR [Suspect]
     Active Substance: ATORVASTATIN CALCIUM
     Indication: BLOOD PRESSURE
     Dosage: UNK

REACTIONS (4)
  - Pain in extremity [Unknown]
  - Product use issue [Unknown]
  - Drug hypersensitivity [Unknown]
  - Muscle spasms [Unknown]
